FAERS Safety Report 7517599-9 (Version None)
Quarter: 2011Q2

REPORT INFORMATION
  Report Type: 
  Country: None (occurrence: None)
  Receive Date: 20110601
  Receipt Date: 20110519
  Transmission Date: 20111010
  Serious: Yes (Other)
  Sender: FDA-Public Use
  Company Number: US-ELI_LILLY_AND_COMPANY-US201001002190

PATIENT
  Sex: Female

DRUGS (11)
  1. SIMVASTATIN [Concomitant]
  2. REVATIO [Concomitant]
  3. FORTEO [Suspect]
     Indication: OSTEOPOROSIS
     Dosage: 20 UG, QD
     Route: 065
     Dates: start: 20091001
  4. FORTEO [Suspect]
     Dosage: 20 UG, QD
  5. ADVAIR DISKUS 100/50 [Concomitant]
  6. SPIRIVA [Concomitant]
  7. HYDROCODONE BITARTRATE [Concomitant]
  8. FORTEO [Suspect]
     Dosage: 20 UG, QD
     Route: 065
     Dates: end: 20110401
  9. TRACLEER [Concomitant]
  10. SINGULAIR [Concomitant]
  11. POTASSIUM CHLORIDE [Concomitant]

REACTIONS (8)
  - BONE DENSITY ABNORMAL [None]
  - LUNG NEOPLASM MALIGNANT [None]
  - BACK DISORDER [None]
  - COUGH [None]
  - HEADACHE [None]
  - PULMONARY MASS [None]
  - INFLUENZA [None]
  - NASOPHARYNGITIS [None]
